FAERS Safety Report 23712586 (Version 1)
Quarter: 2024Q2

REPORT INFORMATION
  Report Type: Spontaneous
  Country: US (occurrence: US)
  Receive Date: 20240405
  Receipt Date: 20240405
  Transmission Date: 20240716
  Serious: Yes (Hospitalization)
  Sender: FDA-Public Use
  Company Number: US-MYLANLABS-2024M1029505

PATIENT
  Age: 65 Year
  Sex: Female

DRUGS (4)
  1. BENDAMUSTINE HYDROCHLORIDE [Suspect]
     Active Substance: BENDAMUSTINE HYDROCHLORIDE
     Indication: Marginal zone lymphoma recurrent
     Dosage: 90 MILLIGRAM/SQ. METER
     Route: 065
     Dates: start: 20230923
  2. ACETAMINOPHEN [Suspect]
     Active Substance: ACETAMINOPHEN
     Indication: Febrile neutropenia
     Dosage: UNK
     Route: 065
  3. ZARXIO [Suspect]
     Active Substance: FILGRASTIM-SNDZ
     Indication: Prophylaxis
     Dosage: UNK UNK, QD
     Route: 065
  4. RITUXIMAB [Concomitant]
     Active Substance: RITUXIMAB
     Indication: Marginal zone lymphoma recurrent
     Dosage: UNK
     Route: 065
     Dates: start: 20230923

REACTIONS (7)
  - Aplastic anaemia [Recovered/Resolved]
  - Pancytopenia [Recovered/Resolved]
  - Neutropenia [Recovered/Resolved]
  - Sepsis [Unknown]
  - Escherichia bacteraemia [Unknown]
  - Febrile neutropenia [Recovering/Resolving]
  - Drug ineffective [Unknown]
